FAERS Safety Report 7658930-3 (Version None)
Quarter: 2011Q3

REPORT INFORMATION
  Report Type: 
  Country: None (occurrence: None)
  Receive Date: 20110805
  Receipt Date: 20110727
  Transmission Date: 20111222
  Serious: Yes (Hospitalization)
  Sender: FDA-Public Use
  Company Number: HR-BAYER-2011-065077

PATIENT
  Age: 66 Year
  Sex: Male
  Weight: 100 kg

DRUGS (6)
  1. CRESTOR [Suspect]
     Indication: HYPERLIPIDAEMIA
     Dosage: UNK
     Route: 048
     Dates: start: 20100101, end: 20110703
  2. ALLOPURINOL [Concomitant]
     Indication: GOUT
     Dosage: UNK, 1
     Route: 048
  3. ANTIHYPERTENSIVES [Concomitant]
     Indication: HYPERTENSION
     Dosage: UNK
     Route: 048
     Dates: start: 20100101
  4. ASPIRIN [Suspect]
     Dosage: UNK
     Route: 048
     Dates: start: 20100101, end: 20110703
  5. GLUCOPHAGE [Concomitant]
     Indication: DIABETES MELLITUS
     Dosage: DAILY DOSE 850 MG
  6. TELMISARTAN [Suspect]
     Indication: HYPERTENSION
     Dosage: UNK, 1
     Route: 048
     Dates: start: 20100101, end: 20110703

REACTIONS (1)
  - ANGIOEDEMA [None]
